FAERS Safety Report 7522595-1 (Version None)
Quarter: 2011Q2

REPORT INFORMATION
  Report Type: 
  Country: None (occurrence: None)
  Receive Date: 20110603
  Receipt Date: 20110601
  Transmission Date: 20111010
  Serious: Yes (Death)
  Sender: FDA-Public Use
  Company Number: EC-ROCHE-780141

PATIENT
  Sex: Female
  Weight: 68.9 kg

DRUGS (2)
  1. CALCIUM CARBONATE [Concomitant]
     Indication: OSTEOPOROSIS
     Dosage: FREQUENCY: REPORTED AS DAILY
     Route: 048
     Dates: start: 20100220, end: 20110401
  2. BONIVA [Suspect]
     Indication: OSTEOPOROSIS
     Route: 042
     Dates: start: 20100717, end: 20110401

REACTIONS (1)
  - MULTIPLE INJURIES [None]
